FAERS Safety Report 11337122 (Version 1)
Quarter: 2015Q3

REPORT INFORMATION
  Report Type: Report from Study
  Country: US (occurrence: US)
  Receive Date: 20150804
  Receipt Date: 20150804
  Transmission Date: 20151125
  Serious: No
  Sender: FDA-Public Use
  Company Number: GXBR2015US001695

PATIENT
  Sex: Male
  Weight: 18.59 kg

DRUGS (1)
  1. OMNITROPE [Suspect]
     Active Substance: SOMATROPIN
     Indication: GROWTH HORMONE DEFICIENCY
     Dosage: 1.0 MG, QD
     Route: 065
     Dates: start: 20150703

REACTIONS (1)
  - Injection site pain [Not Recovered/Not Resolved]
